FAERS Safety Report 20469258 (Version 1)
Quarter: 2022Q1

REPORT INFORMATION
  Report Type: Spontaneous
  Country: US (occurrence: None)
  Receive Date: 20220212
  Receipt Date: 20220212
  Transmission Date: 20220423
  Serious: Yes (Life-Threatening, Hospitalization, Disabling)
  Sender: FDA-Public Use
  Company Number: None

PATIENT
  Age: 69 Year
  Sex: Male
  Weight: 92 kg

DRUGS (2)
  1. VANCOMYCIN [Suspect]
     Active Substance: VANCOMYCIN
     Indication: Peritonitis
     Dosage: FREQUENCY : ONCE;?
     Route: 042
     Dates: start: 20211109, end: 20211109
  2. CEFEPIME [Concomitant]
     Active Substance: CEFEPIME HYDROCHLORIDE
     Dates: start: 20211109, end: 20211109

REACTIONS (13)
  - Red man syndrome [None]
  - Incorrect drug administration rate [None]
  - Bacterial infection [None]
  - Lacunar stroke [None]
  - Microembolism [None]
  - Ischaemic stroke [None]
  - Post procedural hypotension [None]
  - Tachycardia [None]
  - Loss of consciousness [None]
  - Respiratory arrest [None]
  - Bacterial toxaemia [None]
  - Hypotension [None]
  - Infusion related reaction [None]

NARRATIVE: CASE EVENT DATE: 20211109
